FAERS Safety Report 24174284 (Version 2)
Quarter: 2024Q3

REPORT INFORMATION
  Report Type: Spontaneous
  Country: US (occurrence: US)
  Receive Date: 20240805
  Receipt Date: 20240813
  Transmission Date: 20241017
  Serious: Yes (Hospitalization, Other)
  Sender: BIOVITRUM
  Company Number: US-BIOVITRUM-2024-US-010555

PATIENT
  Age: 82 Year
  Sex: Female

DRUGS (1)
  1. KINERET [Suspect]
     Active Substance: ANAKINRA
     Indication: Rheumatoid arthritis
     Dosage: DAILY?AS ORDERED
     Route: 058
     Dates: start: 20240718

REACTIONS (4)
  - Wound [Unknown]
  - Rash [Unknown]
  - Drug hypersensitivity [Unknown]
  - Atrial fibrillation [Unknown]
